FAERS Safety Report 5719503-2 (Version None)
Quarter: 2008Q2

REPORT INFORMATION
  Report Type: 
  Country: None (occurrence: None)
  Receive Date: 20080428
  Receipt Date: 20070320
  Transmission Date: 20081010
  Serious: No
  Sender: FDA-Public Use
  Company Number: A0642207A

PATIENT
  Age: 58 Year
  Sex: Female

DRUGS (10)
  1. AMERGE [Suspect]
     Dosage: 2.5MG SEE DOSAGE TEXT
     Route: 048
     Dates: start: 20030625
  2. CYMBALTA [Concomitant]
     Dosage: 20MG PER DAY
     Route: 048
     Dates: start: 20060914
  3. ALLEGRA D 24 HOUR [Concomitant]
     Indication: MULTIPLE ALLERGIES
     Route: 048
     Dates: start: 20030812
  4. ACIPHEX [Concomitant]
     Dosage: 90MG TWICE PER DAY
     Route: 048
     Dates: start: 20060310
  5. GABAPENTIN [Concomitant]
     Dosage: 300MG TWICE PER DAY
     Route: 048
     Dates: start: 20040224
  6. DIAZEPAM [Concomitant]
     Dosage: 2MG AS REQUIRED
     Route: 048
     Dates: start: 20040113
  7. LYRICA [Concomitant]
     Dosage: 25MG PER DAY
     Route: 048
     Dates: start: 20060301
  8. NEXIUM [Concomitant]
     Dosage: 40MG PER DAY
     Route: 048
     Dates: start: 20040224
  9. HYOSCYAMINE [Concomitant]
     Indication: NAUSEA
     Dosage: .125MG AS REQUIRED
     Route: 060
     Dates: start: 20040425
  10. CLORAZEPATE [Concomitant]
     Dosage: 7.5MG TWICE PER DAY
     Route: 048
     Dates: start: 20070109

REACTIONS (1)
  - DRUG INEFFECTIVE [None]
